FAERS Safety Report 13594840 (Version 1)
Quarter: 2017Q2

REPORT INFORMATION
  Report Type: Report from Study
  Country: None (occurrence: CA)
  Receive Date: 20170530
  Receipt Date: 20170530
  Transmission Date: 20170830
  Serious: Yes (Other)
  Sender: FDA-Public Use
  Company Number: CA-ABBVIE-17K-028-1990800-00

PATIENT
  Sex: Female

DRUGS (1)
  1. HUMIRA [Suspect]
     Active Substance: ADALIMUMAB
     Indication: CROHN^S DISEASE
     Route: 058
     Dates: start: 20070414, end: 20170518

REACTIONS (4)
  - Intestinal obstruction [Not Recovered/Not Resolved]
  - Incision site complication [Not Recovered/Not Resolved]
  - Wound complication [Not Recovered/Not Resolved]
  - Pelvic cyst [Not Recovered/Not Resolved]

NARRATIVE: CASE EVENT DATE: 2015
